FAERS Safety Report 10968226 (Version 1)
Quarter: 2015Q1

REPORT INFORMATION
  Report Type: Spontaneous
  Country: BR (occurrence: BR)
  Receive Date: 20150330
  Receipt Date: 20150330
  Transmission Date: 20150721
  Serious: Yes (Death)
  Sender: FDA-Public Use
  Company Number: BR-B.I. PHARMACEUTICALS,INC./RIDGEFIELD-2015-BI-16840BR

PATIENT
  Age: 73 Year
  Sex: Female

DRUGS (7)
  1. DIGOXIN. [Concomitant]
     Active Substance: DIGOXIN
     Indication: CARDIOMYOPATHY
     Route: 048
     Dates: start: 2005, end: 20150320
  2. ALENIA [Concomitant]
     Active Substance: BUDESONIDE\FORMOTEROL FUMARATE
     Indication: LUNG DISORDER
     Route: 048
     Dates: start: 2014, end: 20150320
  3. NASIC [Concomitant]
     Active Substance: DEXPANTHENOL\XYLOMETAZOLINE HYDROCHLORIDE
     Indication: LUNG DISORDER
     Route: 055
     Dates: start: 2014, end: 20150320
  4. LOSARTANA [Concomitant]
     Active Substance: LOSARTAN
     Indication: CARDIOMYOPATHY
     Route: 048
     Dates: start: 2005, end: 20150320
  5. BEROTEC [Concomitant]
     Active Substance: FENOTEROL HYDROBROMIDE
     Indication: LUNG DISORDER
     Dosage: DOSE PER APPLICATION : 3 DROPS
     Route: 055
     Dates: start: 2014, end: 20150320
  6. PRADAXA [Suspect]
     Active Substance: DABIGATRAN ETEXILATE MESYLATE
     Indication: PRODUCT USED FOR UNKNOWN INDICATION
     Dosage: 220 MG
     Route: 048
     Dates: end: 20150320
  7. ATROVENT [Concomitant]
     Active Substance: IPRATROPIUM BROMIDE
     Indication: LUNG DISORDER
     Dosage: DOSE PER APPLICATION: 20 DROPS
     Route: 055
     Dates: start: 2014, end: 20150320

REACTIONS (1)
  - Infarction [Fatal]

NARRATIVE: CASE EVENT DATE: 20150320
